FAERS Safety Report 18512309 (Version 1)
Quarter: 2020Q4

REPORT INFORMATION
  Report Type: Spontaneous
  Country: DE (occurrence: DE)
  Receive Date: 20201117
  Receipt Date: 20201117
  Transmission Date: 20210114
  Serious: Yes (Death, Hospitalization, Other)
  Sender: FDA-Public Use
  Company Number: DE-TEVA-2020-DE-1848548

PATIENT
  Age: 60 Year
  Sex: Female

DRUGS (7)
  1. ZOLEDRONSAURE [Suspect]
     Active Substance: ZOLEDRONIC ACID
     Route: 065
  2. PALBOCICLIB [Suspect]
     Active Substance: PALBOCICLIB
     Route: 065
  3. ZOPICLONE [Concomitant]
     Active Substance: ZOPICLONE
     Dosage: 7.5 MILLIGRAM DAILY;  0-0-0-1
  4. PANTOPRAZOLE [Concomitant]
     Active Substance: PANTOPRAZOLE
     Dosage: 80 MILLIGRAM DAILY;  1-0-1-0
  5. FULVESTRANT. [Suspect]
     Active Substance: FULVESTRANT
     Route: 065
  6. VOMEX [Concomitant]
     Active Substance: DIMENHYDRINATE
  7. NALOXON/TILIDIN [Concomitant]
     Active Substance: NALOXONE HYDROCHLORIDE\TILIDINE HYDROCHLORIDE
     Dosage: 4 DOSAGE FORMS DAILY; 4|50 MG, 2-0-2-0

REACTIONS (6)
  - Asthenia [Unknown]
  - Vomiting [Unknown]
  - Nausea [Unknown]
  - General physical health deterioration [Unknown]
  - Pancytopenia [Unknown]
  - Dizziness [Unknown]
